FAERS Safety Report 8014119-X (Version None)
Quarter: 2011Q4

REPORT INFORMATION
  Report Type: 
  Country: None (occurrence: None)
  Receive Date: 20111223
  Receipt Date: 20111214
  Transmission Date: 20120403
  Serious: Yes (Hospitalization)
  Sender: FDA-Public Use
  Company Number: KAD201111-000060

PATIENT
  Age: 52 Year
  Sex: Male
  Weight: 74.8435 kg

DRUGS (7)
  1. INCIVEK [Suspect]
     Indication: HEPATITIS C
     Dosage: 2 TABLETS 3 TIMES A DAY EACH
     Dates: start: 20111029, end: 20111119
  2. RIBAVIRIN [Suspect]
     Indication: HEPATITIS C
     Dosage: 600 MG AM AND 600 MG PM, 600 MG AM AND 400 MG PM
     Dates: start: 20111029, end: 20111119
  3. RIBAVIRIN [Suspect]
     Indication: HEPATITIS C
     Dosage: 600 MG AM AND 600 MG PM, 600 MG AM AND 400 MG PM
     Dates: start: 20111201
  4. BENICAR HCT [Concomitant]
  5. PREVACID [Concomitant]
  6. PEGASYS [Suspect]
     Indication: HEPATITIS C
     Dosage: 180 MCG, EVERY SATURDAY, SUBCUTANEOUS, 180 MCG, EVERY SATURDAY, SUBCUTANEOUS
     Route: 058
     Dates: start: 20111029, end: 20111119
  7. PEGASYS [Suspect]
     Indication: HEPATITIS C
     Dosage: 180 MCG, EVERY SATURDAY, SUBCUTANEOUS, 180 MCG, EVERY SATURDAY, SUBCUTANEOUS
     Route: 058
     Dates: start: 20111201

REACTIONS (7)
  - RASH [None]
  - GAIT DISTURBANCE [None]
  - MALAISE [None]
  - PROCTALGIA [None]
  - CONSTIPATION [None]
  - HAEMORRHOIDS [None]
  - RECTAL PROLAPSE [None]
